FAERS Safety Report 4318479-2 (Version None)
Quarter: 2004Q1

REPORT INFORMATION
  Report Type: 
  Country: None (occurrence: None)
  Receive Date: 20040317
  Receipt Date: 20040317
  Transmission Date: 20041129
  Serious: Yes (Hospitalization)
  Sender: FDA-Public Use
  Company Number: None

PATIENT
  Age: 63 Year
  Sex: Female
  Weight: 75.9 kg

DRUGS (12)
  1. PROCRIT 40,000 U/ML AMGEN [Suspect]
     Indication: ANAEMIA
     Dosage: 34,000U SQ QW
     Route: 058
     Dates: start: 20040220
  2. PROCRIT 40,000 U/ML AMGEN [Suspect]
     Indication: CHEMOTHERAPY
     Dosage: 34,000U SQ QW
     Route: 058
     Dates: start: 20040220
  3. HERCEPTIN [Concomitant]
  4. TAXOL [Concomitant]
  5. CARBOPLATIN [Concomitant]
  6. NEXIUM [Concomitant]
  7. OXYCODONE [Concomitant]
  8. BENEDRYL [Concomitant]
  9. TESSALON [Concomitant]
  10. COMPAZINE [Concomitant]
  11. ZOFRAN [Concomitant]
  12. BENEDRYL [Concomitant]

REACTIONS (3)
  - DEEP VEIN THROMBOSIS [None]
  - LYMPHATIC DISORDER [None]
  - PULMONARY EMBOLISM [None]
